FAERS Safety Report 9046170 (Version 1)
Quarter: 2013Q1

REPORT INFORMATION
  Report Type: Spontaneous
  Country: US (occurrence: US)
  Receive Date: 20130201
  Receipt Date: 20130201
  Transmission Date: 20140127
  Serious: Yes (Hospitalization)
  Sender: FDA-Public Use
  Company Number: US-BAYER-2013-010238

PATIENT
  Age: 63 Year
  Sex: Male

DRUGS (1)
  1. MAGNEVIST [Suspect]
     Indication: NUCLEAR MAGNETIC RESONANCE IMAGING BRAIN
     Dosage: 24 ML, ONCE
     Route: 042
     Dates: start: 20130123, end: 20130123

REACTIONS (5)
  - Brain stem stroke [None]
  - Nasal congestion [None]
  - Sneezing [None]
  - Dyspnoea [None]
  - Flushing [None]
